FAERS Safety Report 16316620 (Version 1)
Quarter: 2019Q2

REPORT INFORMATION
  Report Type: Spontaneous
  Country: BE (occurrence: BE)
  Receive Date: 20190515
  Receipt Date: 20190515
  Transmission Date: 20190711
  Serious: Yes (Other)
  Sender: FDA-Public Use
  Company Number: BE-METUCHEN-STN-2019-0169

PATIENT
  Age: 69 Year
  Sex: Male

DRUGS (2)
  1. SPEDRA (AVANAFIL) TABLETS [Suspect]
     Active Substance: AVANAFIL
     Indication: ERECTILE DYSFUNCTION
     Dosage: 2 TO 3 TIMES PER WEEK
     Route: 048
     Dates: start: 2018
  2. COVERSYL [Concomitant]
     Active Substance: PERINDOPRIL
     Indication: HYPERTENSION

REACTIONS (2)
  - Prostate cancer [Unknown]
  - Metastases to spine [Unknown]
